FAERS Safety Report 9715988 (Version 2)
Quarter: 2013Q4

REPORT INFORMATION
  Report Type: Spontaneous
  Country: US (occurrence: US)
  Receive Date: 20131127
  Receipt Date: 20131130
  Transmission Date: 20140711
  Serious: No
  Sender: FDA-Public Use
  Company Number: US-009507513-1311USA010078

PATIENT
  Sex: Female

DRUGS (6)
  1. SAPHRIS [Suspect]
     Indication: BIPOLAR DISORDER
     Dosage: 5 MG, QID; RAPID DISSOLVE
     Route: 060
     Dates: start: 201011
  2. SAPHRIS [Suspect]
     Dosage: UNK; REGULAR SAPHRIS
     Route: 060
  3. LEXAPRO [Concomitant]
  4. GABAPENTIN [Concomitant]
  5. LORAZEPAM [Concomitant]
  6. ADDERALL TABLETS [Concomitant]

REACTIONS (4)
  - Euphoric mood [Unknown]
  - Palpitations [Unknown]
  - Headache [Not Recovered/Not Resolved]
  - Drug ineffective [Unknown]
